FAERS Safety Report 9325763 (Version 2)
Quarter: 2013Q3

REPORT INFORMATION
  Report Type: Spontaneous
  Country: JP (occurrence: JP)
  Receive Date: 20130604
  Receipt Date: 20130705
  Transmission Date: 20140515
  Serious: Yes (Life-Threatening, Hospitalization)
  Sender: FDA-Public Use
  Company Number: JP-ASTELLAS-2013JP005973

PATIENT
  Age: 65 Year
  Sex: Female
  Weight: 43 kg

DRUGS (7)
  1. PROGRAF [Suspect]
     Dosage: 1 MG, UID/QD
     Route: 048
     Dates: start: 20111130, end: 20111227
  2. BREDININ [Concomitant]
     Indication: RHEUMATOID ARTHRITIS
     Dosage: 250 MG, UID/QD
     Route: 048
     Dates: start: 20110309, end: 20121031
  3. PREDONINE                          /00016201/ [Concomitant]
     Indication: RHEUMATOID ARTHRITIS
     Dosage: 39 MG, UID/QD
     Route: 048
     Dates: start: 2005
  4. CELECOX [Concomitant]
     Indication: RHEUMATOID ARTHRITIS
     Dosage: 100 MG, BID
     Route: 048
     Dates: start: 20110330
  5. DEPAS [Concomitant]
     Indication: INSOMNIA
     Dosage: 0.5 MG, UID/QD
     Route: 048
     Dates: start: 20110420
  6. ALFAROL [Concomitant]
     Indication: OSTEOPOROSIS
     Dosage: 0.25 UG, UID/QD
     Route: 048
     Dates: start: 2005
  7. PROGRAF [Suspect]
     Indication: RHEUMATOID ARTHRITIS
     Dosage: 2 MG, UID/QD
     Route: 048
     Dates: start: 20111227, end: 20121031

REACTIONS (2)
  - Intentional drug misuse [Unknown]
  - Diffuse alveolar damage [Recovering/Resolving]
